FAERS Safety Report 9585355 (Version 1)
Quarter: 2013Q4

REPORT INFORMATION
  Report Type: Spontaneous
  Country: US (occurrence: US)
  Receive Date: 20131002
  Receipt Date: 20131002
  Transmission Date: 20140711
  Serious: No
  Sender: FDA-Public Use
  Company Number: US-AMGEN-USASP2013063778

PATIENT
  Age: 63 Year
  Sex: Female

DRUGS (16)
  1. ENBREL [Suspect]
     Indication: PRODUCT USED FOR UNKNOWN INDICATION
     Dosage: 50 MG, QWK
     Route: 058
     Dates: start: 201302
  2. LEFLUNOMIDE [Suspect]
     Indication: PRODUCT USED FOR UNKNOWN INDICATION
     Dosage: 10 MG, UNK
     Route: 065
  3. PREDNISONE [Suspect]
     Indication: PRODUCT USED FOR UNKNOWN INDICATION
     Dosage: UNK
     Route: 065
  4. PROMETRIUM                         /00110701/ [Concomitant]
     Dosage: 100 MG, UNK
  5. TOPAMAX [Concomitant]
     Dosage: 25 MG, UNK
  6. ESTROGEL [Concomitant]
     Dosage: UNK
  7. MELOXICAM [Concomitant]
     Dosage: 7.5 MG, UNK
  8. METHOTREXATE [Concomitant]
     Dosage: 2.5 MG, UNK
  9. FOLIC ACID [Concomitant]
     Dosage: 1 MG, UNK
  10. NEXIUM                             /01479302/ [Concomitant]
     Dosage: 40 MG, UNK
  11. AMITRIPTYLIN [Concomitant]
     Dosage: 10 MG, UNK
  12. ASPIRIN [Concomitant]
     Dosage: 81 MG, UNK
  13. CALCIUM [Concomitant]
     Dosage: 600
  14. MULTIVITAMINS, PLAIN [Concomitant]
     Dosage: UNK
  15. VITAMIN D                          /00107901/ [Concomitant]
     Dosage: 1000 UNIT, UNK
  16. FLEXERIL                           /00428402/ [Concomitant]
     Dosage: 5 MG, UNK

REACTIONS (1)
  - Alopecia [Unknown]
